FAERS Safety Report 6863389-X (Version None)
Quarter: 2010Q3

REPORT INFORMATION
  Report Type: 
  Country: None (occurrence: None)
  Receive Date: 20100719
  Receipt Date: 20100709
  Transmission Date: 20110219
  Serious: Yes (Other)
  Sender: FDA-Public Use
  Company Number: 2010SP038283

PATIENT
  Age: 29 Year
  Sex: Female

DRUGS (4)
  1. NUVARING [Suspect]
     Indication: ARTIFICIAL MENOPAUSE
     Dates: start: 20090901
  2. NUVARING [Suspect]
     Indication: ENDOMETRIOSIS
     Dates: start: 20090901
  3. NUVARING [Suspect]
     Indication: ARTIFICIAL MENOPAUSE
     Dates: start: 20100704
  4. NUVARING [Suspect]
     Indication: ENDOMETRIOSIS
     Dates: start: 20100704

REACTIONS (4)
  - FEELING ABNORMAL [None]
  - INCORRECT PRODUCT STORAGE [None]
  - IRRITABILITY [None]
  - POSTMENOPAUSAL HAEMORRHAGE [None]
